FAERS Safety Report 5734814-2 (Version None)
Quarter: 2008Q2

REPORT INFORMATION
  Report Type: 
  Country: None (occurrence: None)
  Receive Date: 20080512
  Receipt Date: 20080503
  Transmission Date: 20081010
  Serious: Yes (Hospitalization)
  Sender: FDA-Public Use
  Company Number: CA-JNJFOC-20080500908

PATIENT
  Sex: Male
  Weight: 80 kg

DRUGS (2)
  1. REMICADE [Suspect]
     Indication: CROHN'S DISEASE
     Dosage: 1 DOSE ONLY
     Route: 042
  2. ASACOL [Concomitant]

REACTIONS (3)
  - CONVULSION [None]
  - LYMPHOMA [None]
  - SEPSIS [None]
